FAERS Safety Report 17133096 (Version 1)
Quarter: 2019Q4

REPORT INFORMATION
  Report Type: Spontaneous
  Country: SE (occurrence: SE)
  Receive Date: 20191210
  Receipt Date: 20191210
  Transmission Date: 20200122
  Serious: Yes (Hospitalization)
  Sender: FDA-Public Use
  Company Number: SE-TEVA-2019-SE-1149129

PATIENT
  Age: 16 Year
  Sex: Female
  Weight: 60 kg

DRUGS (3)
  1. LERGIGAN [PROMETHAZINE HYDROCHLORIDE] [Suspect]
     Active Substance: PROMETHAZINE HYDROCHLORIDE
     Route: 048
     Dates: start: 20180912, end: 20180912
  2. MIRTAZAPINE. [Suspect]
     Active Substance: MIRTAZAPINE
     Route: 048
     Dates: start: 20180912, end: 20180912
  3. MELATONIN [Suspect]
     Active Substance: MELATONIN
     Route: 048
     Dates: start: 20180912, end: 20180912

REACTIONS (3)
  - Intentional self-injury [Unknown]
  - Intentional overdose [Unknown]
  - Pupillary reflex impaired [Unknown]

NARRATIVE: CASE EVENT DATE: 20180912
